FAERS Safety Report 9845864 (Version 1)
Quarter: 2013Q4

REPORT INFORMATION
  Report Type: Spontaneous
  Country: US (occurrence: None)
  Receive Date: 20131219
  Receipt Date: 20131219
  Transmission Date: 20140711
  Serious: Yes (Other)
  Sender: FDA-Public Use
  Company Number: 163-20785-13083523

PATIENT
  Age: 62 Year
  Sex: Male

DRUGS (5)
  1. THALOMID (THALIDOMIDE) (100 MILLIGRAM, CAPSULES) [Suspect]
     Indication: PLASMA CELL MYELOMA
     Route: 048
     Dates: start: 200902
  2. MELPHALAN [Concomitant]
  3. PREDNISONE [Concomitant]
  4. VELCADE (BORTEZOMIB) [Concomitant]
  5. DECADRON (DEXAMETHASONE) [Concomitant]

REACTIONS (2)
  - Platelet count decreased [None]
  - White blood cell count decreased [None]
